FAERS Safety Report 7922131 (Version 2)
Quarter: 2012Q4

REPORT INFORMATION
  Report Type: 
  Country: US (occurrence: US)
  Receive Date: 20110429
  Receipt Date: 20121220
  Transmission Date: 20130627
  Serious: No
  Sender: FDA-Public Use
  Company Number: US-ASTRAZENECA-2010SE59562

PATIENT
  Age: 81 Year
  Sex: Female

DRUGS (2)
  1. NEXIUM [Suspect]
     Route: 048
  2. CRESTOR [Suspect]
     Route: 048

REACTIONS (9)
  - Food poisoning [Unknown]
  - Road traffic accident [Unknown]
  - Back pain [Unknown]
  - Joint dislocation [Unknown]
  - Joint swelling [Unknown]
  - Vomiting [Unknown]
  - Malaise [Unknown]
  - Oedema peripheral [Unknown]
  - Drug dose omission [Unknown]
